FAERS Safety Report 7679214-3 (Version None)
Quarter: 2011Q3

REPORT INFORMATION
  Report Type: 
  Country: None (occurrence: None)
  Receive Date: 20110812
  Receipt Date: 20110805
  Transmission Date: 20111222
  Serious: Yes (Hospitalization)
  Sender: FDA-Public Use
  Company Number: GB-AMGEN-QUU442273

PATIENT
  Age: 48 Year
  Sex: Female
  Weight: 95.3 kg

DRUGS (4)
  1. AMOXICILLIN [Concomitant]
     Dosage: UNK
  2. FOLIC ACID [Suspect]
     Dosage: 5 MG BI-WEEKLY
     Route: 048
     Dates: start: 20100517, end: 20100823
  3. ETANERCEPT [Suspect]
     Indication: RHEUMATOID ARTHRITIS
     Dosage: 50 MG, QWK
     Route: 058
     Dates: start: 20100517, end: 20100823
  4. METHOTREXATE SODIUM [Suspect]
     Indication: RHEUMATOID ARTHRITIS
     Dosage: 20 MG, WEEKLY
     Route: 048
     Dates: start: 20100517, end: 20100823

REACTIONS (4)
  - UTERINE CANCER [None]
  - ABDOMINAL MASS [None]
  - PLEURAL EFFUSION [None]
  - ABDOMINAL PAIN [None]
